FAERS Safety Report 10161343 (Version 2)
Quarter: 2014Q2

REPORT INFORMATION
  Report Type: Spontaneous
  Country: CH (occurrence: CH)
  Receive Date: 20140509
  Receipt Date: 20140509
  Transmission Date: 20141212
  Serious: Yes (Other)
  Sender: FDA-Public Use
  Company Number: CH-ROCHE-1363565

PATIENT
  Sex: Female
  Weight: 110 kg

DRUGS (3)
  1. KADCYLA [Suspect]
     Indication: BREAST CANCER METASTATIC
     Dosage: LAST DOSE PRIOR TO ADVERSE EVEN 10/SEP/2013
     Route: 065
     Dates: start: 20130730, end: 20130910
  2. EUTHYROX [Concomitant]
     Indication: HYPOTHYROIDISM
     Route: 065
  3. DILATREND [Concomitant]
     Indication: CARDIAC FAILURE
     Route: 065

REACTIONS (1)
  - Cardiac failure [Unknown]
